FAERS Safety Report 8599565-8 (Version None)
Quarter: 2012Q3

REPORT INFORMATION
  Report Type: 
  Country: None (occurrence: None)
  Receive Date: 20120816
  Receipt Date: 20100901
  Transmission Date: 20120928
  Serious: Yes (Other)
  Sender: FDA-Public Use
  Company Number: BR-AMGEN-KDC436741

PATIENT
  Sex: Female

DRUGS (1)
  1. FILGRASTIM [Suspect]
     Indication: PRODUCT USED FOR UNKNOWN INDICATION

REACTIONS (11)
  - HYPERAESTHESIA [None]
  - PAIN IN EXTREMITY [None]
  - SEBORRHOEIC DERMATITIS [None]
  - ERYTHEMA [None]
  - BLEPHARITIS [None]
  - DEPRESSION [None]
  - DANDRUFF [None]
  - NEUTROPHIL COUNT DECREASED [None]
  - INSOMNIA [None]
  - FATIGUE [None]
  - IMMUNODEFICIENCY [None]
